FAERS Safety Report 9836505 (Version 2)
Quarter: 2014Q1

REPORT INFORMATION
  Report Type: Spontaneous
  Country: AR (occurrence: AR)
  Receive Date: 20140123
  Receipt Date: 20140320
  Transmission Date: 20141002
  Serious: Yes (Other)
  Sender: FDA-Public Use
  Company Number: AR-AMGEN-ARGSP2014004317

PATIENT
  Age: 63 Year
  Sex: Female

DRUGS (3)
  1. ENBREL [Suspect]
     Indication: RHEUMATOID ARTHRITIS
     Dosage: 50 MG, WEEKLY
     Route: 058
     Dates: start: 20051028, end: 20140102
  2. METHOTREXATE [Concomitant]
     Dosage: 50 MG, WEEKLY
     Route: 058
  3. FOLIC ACID [Concomitant]
     Dosage: UNK

REACTIONS (2)
  - Foot deformity [Recovered/Resolved]
  - Arthritis [Recovered/Resolved]
